FAERS Safety Report 4812353-0 (Version None)
Quarter: 2005Q4

REPORT INFORMATION
  Report Type: 
  Country: None (occurrence: None)
  Receive Date: 20051028
  Receipt Date: 20050117
  Transmission Date: 20060501
  Serious: No
  Sender: FDA-Public Use
  Company Number: US-GLAXOSMITHKLINE-A0540935A

PATIENT
  Age: 79 Year
  Sex: Male

DRUGS (4)
  1. ADVAIR DISKUS 100/50 [Suspect]
     Dosage: 1PUFF TWICE PER DAY
     Route: 055
  2. LORATADINE [Concomitant]
  3. ATENOLOL [Concomitant]
  4. ZOCOR [Concomitant]

REACTIONS (1)
  - MOUTH HAEMORRHAGE [None]
